FAERS Safety Report 24121356 (Version 1)
Quarter: 2024Q3

REPORT INFORMATION
  Report Type: Other
  Country: AU (occurrence: AU)
  Receive Date: 20240722
  Receipt Date: 20240722
  Transmission Date: 20241017
  Serious: Yes (Other)
  Sender: NOVA LABORATORIES
  Company Number: AU-Nova Laboratories Limited-2159441

PATIENT
  Age: 29 Year
  Sex: Male

DRUGS (3)
  1. PURIXAN [Suspect]
     Active Substance: MERCAPTOPURINE
     Indication: Colitis ulcerative
     Dates: start: 201610, end: 202203
  2. MESALAMINE [Concomitant]
     Active Substance: MESALAMINE
  3. MERCAPTOPURINE [Suspect]
     Active Substance: MERCAPTOPURINE
     Dates: start: 202207, end: 202302

REACTIONS (2)
  - Hepatosplenic T-cell lymphoma [Unknown]
  - Off label use [Unknown]

NARRATIVE: CASE EVENT DATE: 20230201
